FAERS Safety Report 24289977 (Version 1)
Quarter: 2024Q3

REPORT INFORMATION
  Report Type: Report from Study
  Country: US (occurrence: None)
  Receive Date: 20240906
  Receipt Date: 20240906
  Transmission Date: 20241017
  Serious: Yes (Other)
  Sender: ASTRAZENECA
  Company Number: 2024A199690

PATIENT
  Sex: Female

DRUGS (1)
  1. FASENRA [Suspect]
     Active Substance: BENRALIZUMAB
     Indication: Asthma
     Route: 058
     Dates: start: 202308

REACTIONS (4)
  - Fluid retention [Unknown]
  - Cough [Recovering/Resolving]
  - Peripheral swelling [Unknown]
  - Inability to afford medication [Recovered/Resolved]
